FAERS Safety Report 11242640 (Version 1)
Quarter: 2015Q3

REPORT INFORMATION
  Report Type: Report from Study
  Country: IT (occurrence: IT)
  Receive Date: 20150707
  Receipt Date: 20150707
  Transmission Date: 20151125
  Serious: Yes (Hospitalization, Other)
  Sender: FDA-Public Use
  Company Number: IT-ROCHE-1598567

PATIENT

DRUGS (3)
  1. OXALIPLATIN. [Suspect]
     Active Substance: OXALIPLATIN
     Indication: HEPATOBILIARY CANCER
     Route: 042
  2. CAPECITABINE. [Suspect]
     Active Substance: CAPECITABINE
     Indication: HEPATOBILIARY CANCER
     Dosage: 14 DAYS ON DAY 21 IN TWO DIVIDED DOSES
     Route: 048
  3. GEMCITABINE [Suspect]
     Active Substance: GEMCITABINE\GEMCITABINE HYDROCHLORIDE
     Indication: HEPATOBILIARY CANCER
     Dosage: ON DAYS 1 AND 8
     Route: 042

REACTIONS (10)
  - Anaemia [Unknown]
  - Neutropenia [Unknown]
  - Thrombocytopenia [Unknown]
  - Diarrhoea [Unknown]
  - Nausea [Unknown]
  - Vomiting [Unknown]
  - Cholangitis [Unknown]
  - Bile duct obstruction [Unknown]
  - Palmar-plantar erythrodysaesthesia syndrome [Unknown]
  - Hyperbilirubinaemia [Unknown]
